FAERS Safety Report 20760979 (Version 2)
Quarter: 2022Q2

REPORT INFORMATION
  Report Type: Spontaneous
  Country: DE (occurrence: None)
  Receive Date: 20220428
  Receipt Date: 20220516
  Transmission Date: 20220721
  Serious: Yes (Hospitalization)
  Sender: FDA-Public Use
  Company Number: DE-ROCHE-3080325

PATIENT
  Age: 48 Year
  Sex: Female

DRUGS (5)
  1. ATEZOLIZUMAB [Suspect]
     Active Substance: ATEZOLIZUMAB
     Indication: Bile duct cancer
     Dosage: DATE OF LAST DOSE ADMINISTRED BEFORE ONSET OF EVENT 29-MAR-2022
     Route: 041
     Dates: start: 20210215
  2. BEVACIZUMAB [Suspect]
     Active Substance: BEVACIZUMAB
     Indication: Bile duct cancer
     Dosage: DATE OF LAST DOSE ADMINISTERED BEFORE ONSET OF EVENT 29-MAR-2022
     Route: 042
     Dates: start: 20210215
  3. LEUCOVORIN [Concomitant]
     Active Substance: LEUCOVORIN
     Indication: Bile duct cancer
     Dosage: D,L RACEMIC FORM
     Route: 042
     Dates: start: 20220118
  4. FLUOROURACIL [Concomitant]
     Active Substance: FLUOROURACIL
     Indication: Bile duct cancer
     Route: 042
     Dates: start: 20220118
  5. OXALIPLATIN [Concomitant]
     Active Substance: OXALIPLATIN
     Indication: Bile duct cancer
     Route: 042
     Dates: start: 20220118

REACTIONS (1)
  - Back pain [Not Recovered/Not Resolved]

NARRATIVE: CASE EVENT DATE: 20220418
